FAERS Safety Report 4449154-1 (Version None)
Quarter: 2004Q3

REPORT INFORMATION
  Report Type: 
  Country: None (occurrence: None)
  Receive Date: 20040913
  Receipt Date: 20040828
  Transmission Date: 20050211
  Serious: Yes (Hospitalization, Other)
  Sender: FDA-Public Use
  Company Number: 2004060498

PATIENT
  Age: 72 Year
  Sex: Male
  Weight: 83.9154 kg

DRUGS (3)
  1. VIAGRA [Suspect]
     Indication: ILL-DEFINED DISORDER
     Dosage: 50 MG, ORAL
     Route: 048
  2. TAMSULOSIN [Suspect]
     Indication: ILL-DEFINED DISORDER
     Dosage: ORAL
     Route: 048
  3. CELECOXIB [Concomitant]

REACTIONS (6)
  - AMNESIA [None]
  - COLD SWEAT [None]
  - FLUSHING [None]
  - HYPERHIDROSIS [None]
  - INCOHERENT [None]
  - VOMITING [None]
